FAERS Safety Report 5916516-2 (Version None)
Quarter: 2008Q4

REPORT INFORMATION
  Report Type: 
  Country: None (occurrence: None)
  Receive Date: 20081013
  Receipt Date: 20081003
  Transmission Date: 20090506
  Serious: Yes (Hospitalization)
  Sender: FDA-Public Use
  Company Number: A0751466A

PATIENT
  Age: 72 Year
  Sex: Male
  Weight: 120.5 kg

DRUGS (2)
  1. AVANDIA [Suspect]
     Dosage: 8MG PER DAY
     Route: 065
     Dates: start: 19990101, end: 20070201
  2. NOVOLIN R [Concomitant]
     Dates: start: 19990101

REACTIONS (6)
  - ACUTE CORONARY SYNDROME [None]
  - AMNESIA [None]
  - HYPERTENSION [None]
  - MYOCARDIAL INFARCTION [None]
  - RENAL DISORDER [None]
  - WEIGHT INCREASED [None]
